FAERS Safety Report 11149270 (Version 4)
Quarter: 2016Q1

REPORT INFORMATION
  Report Type: Report from Study
  Country: CA (occurrence: CA)
  Receive Date: 20150529
  Receipt Date: 20160304
  Transmission Date: 20160525
  Serious: Yes (Other)
  Sender: FDA-Public Use
  Company Number: CA-GILEAD-2015-0155172

PATIENT
  Age: 60 Year
  Sex: Male
  Weight: 85.5 kg

DRUGS (3)
  1. SOFOSBUVIR [Suspect]
     Active Substance: SOFOSBUVIR
     Indication: HEPATITIS C
     Dosage: 400 MG, UNK
     Route: 048
     Dates: start: 20150204, end: 20150430
  2. PEGASYS [Suspect]
     Active Substance: PEGINTERFERON ALFA-2A
     Indication: HEPATITIS C
     Dosage: 180 UG, Q1WK
     Route: 058
     Dates: start: 20150204, end: 20150430
  3. COPEGUS [Concomitant]
     Active Substance: RIBAVIRIN
     Indication: HEPATITIS C
     Dosage: UNK
     Route: 048
     Dates: start: 201502, end: 20150430

REACTIONS (3)
  - Diarrhoea [Recovered/Resolved]
  - Ascites [Recovered/Resolved]
  - Oedema peripheral [Not Recovered/Not Resolved]
